FAERS Safety Report 9121402 (Version 1)
Quarter: 2013Q1

REPORT INFORMATION
  Report Type: Spontaneous
  Country: US (occurrence: US)
  Receive Date: 20130225
  Receipt Date: 20130225
  Transmission Date: 20140127
  Serious: Yes (Death)
  Sender: FDA-Public Use
  Company Number: US-ROCHE-1192957

PATIENT
  Sex: Male

DRUGS (9)
  1. AVASTIN [Suspect]
     Indication: METASTASES TO BONE
     Route: 065
     Dates: start: 201107
  2. XELODA [Suspect]
     Indication: PRODUCT USED FOR UNKNOWN INDICATION
     Route: 065
     Dates: start: 20120522, end: 20120831
  3. AROMASIN [Suspect]
     Indication: BREAST CANCER
     Route: 048
     Dates: start: 20120919
  4. AFINITOR [Suspect]
     Indication: BREAST CANCER
     Route: 065
     Dates: start: 20120831
  5. ABRAXANE [Suspect]
     Indication: METASTASES TO BONE
     Route: 065
     Dates: start: 201107
  6. OXYCODONE COUGH SYRUP [Concomitant]
     Dosage: 1-2
     Route: 065
  7. COMPAZINE [Concomitant]
     Indication: NAUSEA
     Dosage: PM
     Route: 065
  8. TUSSIONEX (UNITED STATES) [Concomitant]
     Indication: COUGH
     Dosage: PM
     Route: 065
  9. SYMBICORT [Concomitant]
     Route: 065

REACTIONS (1)
  - Disease progression [Fatal]
